FAERS Safety Report 10355659 (Version 2)
Quarter: 2014Q3

REPORT INFORMATION
  Report Type: Spontaneous
  Country: US (occurrence: US)
  Receive Date: 20140731
  Receipt Date: 20140808
  Transmission Date: 20150326
  Serious: Yes (Life-Threatening, Hospitalization, Other)
  Sender: FDA-Public Use
  Company Number: US-009507513-1407USA012339

PATIENT
  Age: 66 Year
  Sex: Male
  Weight: 112 kg

DRUGS (6)
  1. ACTIVASE [Interacting]
     Active Substance: ALTEPLASE
     Dosage: 81 MG, OVER 60 MINUTES
     Route: 042
  2. PRINIVIL [Suspect]
     Active Substance: LISINOPRIL
     Dosage: 40 MG, QD
     Route: 048
  3. ACTIVASE [Interacting]
     Active Substance: ALTEPLASE
     Dosage: 9 MG, OVER 1 MINUTE
     Route: 040
  4. ASPIRIN. [Concomitant]
     Active Substance: ASPIRIN
     Dosage: 81 MG, QD
     Route: 048
  5. AMLODIPINE [Concomitant]
     Active Substance: AMLODIPINE BESYLATE
     Dosage: 10 MG, QD
     Route: 048
  6. SPIRONOLACTONE. [Concomitant]
     Active Substance: SPIRONOLACTONE
     Dosage: 25 MG, BID
     Route: 048

REACTIONS (3)
  - Endotracheal intubation [Recovered/Resolved]
  - Drug interaction [Unknown]
  - Angioedema [Recovered/Resolved]
